FAERS Safety Report 18596791 (Version 1)
Quarter: 2020Q4

REPORT INFORMATION
  Report Type: Spontaneous
  Country: GB (occurrence: GB)
  Receive Date: 20201209
  Receipt Date: 20201209
  Transmission Date: 20210114
  Serious: Yes (Disabling)
  Sender: FDA-Public Use
  Company Number: GB-TEVA-2020-GB-1855442

PATIENT
  Age: 74 Year
  Sex: Female
  Weight: 84 kg

DRUGS (5)
  1. CODEINE PHOSPHATE [Concomitant]
     Active Substance: CODEINE PHOSPHATE
     Indication: PAIN
     Dosage: 1-2 FOUR TIMES DAILYAS REQUIRED. CAN ...
     Dates: start: 20200928, end: 20201005
  2. AMITRIPTYLINE HYDROCHLORIDE. [Concomitant]
     Active Substance: AMITRIPTYLINE HYDROCHLORIDE
     Dosage: 2 DOSAGE FORMS DAILY; TO BE TAKEN EACH NIGHT. CAN CAUSE SOME S...
     Dates: start: 20200316
  3. ALENDRONIC ACID [Suspect]
     Active Substance: ALENDRONIC ACID
     Dosage: ON THE SAME DAY EACH WEEK, UNIT DOSE: 70 MG
     Route: 065
     Dates: start: 20201104
  4. PREDNISOLONE. [Concomitant]
     Active Substance: PREDNISOLONE
     Dosage: 3 DOSAGE FORMS
     Dates: start: 20201104
  5. PARACETAMOL [Concomitant]
     Active Substance: ACETAMINOPHEN
     Dosage: WHEN REQUIRED FOR PA...UNIT DOSE: 8 DOSAGE FORMS
     Dates: start: 20200417

REACTIONS (2)
  - Dysphagia [Unknown]
  - Yawning [Unknown]

NARRATIVE: CASE EVENT DATE: 20201109
